FAERS Safety Report 14879725 (Version 1)
Quarter: 2018Q2

REPORT INFORMATION
  Report Type: Spontaneous
  Country: US (occurrence: US)
  Receive Date: 20180511
  Receipt Date: 20180511
  Transmission Date: 20180711
  Serious: No
  Sender: FDA-Public Use
  Company Number: US-BAYER-2018-082937

PATIENT
  Age: 75 Year
  Sex: Male
  Weight: 92 kg

DRUGS (13)
  1. CLARITIN [Suspect]
     Active Substance: LORATADINE
     Indication: HYPERSENSITIVITY
     Dosage: 10 DF, QD
     Route: 048
     Dates: start: 20180426
  2. RANOROC [Concomitant]
  3. SIMVASTATIN. [Concomitant]
     Active Substance: SIMVASTATIN
     Dosage: UNK UNK, QD
  4. ZETIA [Concomitant]
     Active Substance: EZETIMIBE
  5. ADVAIR HFA [Concomitant]
     Active Substance: FLUTICASONE PROPIONATE\SALMETEROL XINAFOATE
  6. CARVEDILOL. [Concomitant]
     Active Substance: CARVEDILOL
  7. VITAMIN B12 [Concomitant]
     Active Substance: CYANOCOBALAMIN
  8. NORVASC [Concomitant]
     Active Substance: AMLODIPINE BESYLATE
  9. BAYER ASPIRIN WITH HEART ADVANTAGE [Concomitant]
     Indication: PROPHYLAXIS
     Dosage: 1 DF, QD
     Route: 047
  10. PRILOSEC [Concomitant]
     Active Substance: OMEPRAZOLE MAGNESIUM
  11. ALBUTEROL. [Concomitant]
     Active Substance: ALBUTEROL
     Dosage: UNK
  12. LASIX [Concomitant]
     Active Substance: FUROSEMIDE
  13. CLARITIN [Suspect]
     Active Substance: LORATADINE
     Indication: NASOPHARYNGITIS

REACTIONS (2)
  - Product use issue [Unknown]
  - Discomfort [Recovered/Resolved]

NARRATIVE: CASE EVENT DATE: 20180426
